FAERS Safety Report 7148077-7 (Version None)
Quarter: 2010Q4

REPORT INFORMATION
  Report Type: 
  Country: None (occurrence: None)
  Receive Date: 20101209
  Receipt Date: 20101129
  Transmission Date: 20110411
  Serious: No
  Sender: FDA-Public Use
  Company Number: US-B.I. PHARMACEUTICALS,INC./RIDGEFIELD-2010-BP-13525BP

PATIENT
  Sex: Female

DRUGS (3)
  1. SPIRIVA [Suspect]
     Indication: CHRONIC OBSTRUCTIVE PULMONARY DISEASE
     Dosage: 18 MCG
     Route: 055
     Dates: start: 20101101
  2. SPIRIVA [Suspect]
     Indication: EMPHYSEMA
  3. DULERA TABLET [Suspect]

REACTIONS (7)
  - CHEILITIS [None]
  - COUGH [None]
  - DYSPHONIA [None]
  - LIP SWELLING [None]
  - LUNG DISORDER [None]
  - OROPHARYNGEAL PAIN [None]
  - VISION BLURRED [None]
